FAERS Safety Report 17184820 (Version 4)
Quarter: 2020Q2

REPORT INFORMATION
  Report Type: Spontaneous
  Country: ES (occurrence: ES)
  Receive Date: 20191220
  Receipt Date: 20200619
  Transmission Date: 20200713
  Serious: Yes (Death)
  Sender: FDA-Public Use
  Company Number: NVSC2019ES073487

PATIENT
  Age: 45 Year
  Sex: Male

DRUGS (15)
  1. MIRTAZAPINE. [Suspect]
     Active Substance: MIRTAZAPINE
     Route: 065
  2. VENLAFAXINE [Suspect]
     Active Substance: VENLAFAXINE HYDROCHLORIDE
     Indication: TOXICITY TO VARIOUS AGENTS
     Dosage: UNK
     Route: 065
  3. ALCOHOL. [Suspect]
     Active Substance: ALCOHOL
     Route: 065
  4. VENLAFAXINE [Suspect]
     Active Substance: VENLAFAXINE HYDROCHLORIDE
     Route: 065
  5. MIRTAZAPINE. [Suspect]
     Active Substance: MIRTAZAPINE
     Indication: TOXICITY TO VARIOUS AGENTS
     Dosage: UNK
     Route: 048
  6. ALPRAZOLAM. [Suspect]
     Active Substance: ALPRAZOLAM
     Route: 065
  7. ALPRAZOLAM. [Suspect]
     Active Substance: ALPRAZOLAM
     Route: 065
  8. VENLAFAXINE [Suspect]
     Active Substance: VENLAFAXINE HYDROCHLORIDE
     Route: 065
  9. MIRTAZAPINE. [Suspect]
     Active Substance: MIRTAZAPINE
     Route: 065
  10. CLOTIAPINE [Suspect]
     Active Substance: CLOTHIAPINE
     Route: 065
  11. ALCOHOL. [Suspect]
     Active Substance: ALCOHOL
     Route: 065
  12. ALPRAZOLAM. [Suspect]
     Active Substance: ALPRAZOLAM
     Indication: TOXICITY TO VARIOUS AGENTS
     Dosage: UNK
     Route: 065
  13. CLOTIAPINE [Suspect]
     Active Substance: CLOTHIAPINE
     Indication: TOXICITY TO VARIOUS AGENTS
     Dosage: UNK
     Route: 065
  14. CLOTIAPINE [Suspect]
     Active Substance: CLOTHIAPINE
     Route: 065
  15. ALCOHOL. [Suspect]
     Active Substance: ALCOHOL
     Indication: TOXICITY TO VARIOUS AGENTS
     Dosage: UNK
     Route: 065

REACTIONS (3)
  - Sudden death [Fatal]
  - Poisoning [Fatal]
  - Toxicity to various agents [Fatal]
